FAERS Safety Report 12281764 (Version 3)
Quarter: 2020Q2

REPORT INFORMATION
  Report Type: Spontaneous
  Country: US (occurrence: US)
  Receive Date: 20160419
  Receipt Date: 20200521
  Transmission Date: 20200713
  Serious: No
  Sender: FDA-Public Use
  Company Number: US-TEVA-641841USA

PATIENT
  Sex: Female

DRUGS (1)
  1. ZECUITY [Suspect]
     Active Substance: SUMATRIPTAN SUCCINATE
     Indication: MIGRAINE
     Dosage: 6.5 MG / 4 HOURS
     Route: 062

REACTIONS (5)
  - Device power source issue [Unknown]
  - Migraine [Recovered/Resolved]
  - Device leakage [Unknown]
  - Drug ineffective [Unknown]
  - Application site erythema [Unknown]
